FAERS Safety Report 19145656 (Version 4)
Quarter: 2021Q4

REPORT INFORMATION
  Report Type: Spontaneous
  Country: US (occurrence: None)
  Receive Date: 20210416
  Receipt Date: 20211203
  Transmission Date: 20220303
  Serious: Yes (Death, Hospitalization, Other)
  Sender: FDA-Public Use
  Company Number: US-HIKMA PHARMACEUTICALS USA INC.-US-H14001-21-01891

PATIENT
  Age: 2 Year
  Sex: Female

DRUGS (5)
  1. BOSENTAN [Suspect]
     Active Substance: BOSENTAN
     Indication: Pulmonary arterial hypertension
     Dates: start: 20191121, end: 20191121
  2. BOSENTAN [Suspect]
     Active Substance: BOSENTAN
     Indication: Chronic respiratory disease
     Dosage: 3.5 ML
     Dates: start: 20210202
  3. SILDENAFIL [Concomitant]
     Active Substance: SILDENAFIL
     Indication: Pulmonary arterial hypertension
     Route: 065
  4. AMLODIPINE [Concomitant]
     Active Substance: AMLODIPINE BESYLATE
     Indication: Hypertension
     Route: 065
  5. CLONIDINE [Concomitant]
     Active Substance: CLONIDINE
     Indication: Sedation
     Route: 065

REACTIONS (4)
  - Rhinovirus infection [Not Recovered/Not Resolved]
  - Visual impairment [Unknown]
  - Hypoacusis [Unknown]
  - Acute respiratory failure [Fatal]

NARRATIVE: CASE EVENT DATE: 20210325
